FAERS Safety Report 20664403 (Version 4)
Quarter: 2023Q2

REPORT INFORMATION
  Report Type: Spontaneous
  Country: US (occurrence: US)
  Receive Date: 20220401
  Receipt Date: 20230605
  Transmission Date: 20230721
  Serious: Yes (Other)
  Sender: FDA-Public Use
  Company Number: US-PFIZER INC-202200488246

PATIENT
  Age: 76 Year
  Sex: Female
  Weight: 134.24 kg

DRUGS (1)
  1. ESTRING [Suspect]
     Active Substance: ESTRADIOL
     Dosage: 7.5 UG, DAILY (7.5 MCG PER 24 HRS)

REACTIONS (2)
  - Cerebrovascular accident [Unknown]
  - Dysgraphia [Unknown]
